FAERS Safety Report 22715224 (Version 6)
Quarter: 2024Q2

REPORT INFORMATION
  Report Type: Spontaneous
  Country: JP (occurrence: JP)
  Receive Date: 20230718
  Receipt Date: 20240512
  Transmission Date: 20240716
  Serious: Yes (Hospitalization, Other)
  Sender: FDA-Public Use
  Company Number: JP-ALXN-A202309012AA

PATIENT
  Age: 63 Year
  Sex: Female
  Weight: 61 kg

DRUGS (6)
  1. ULTOMIRIS [Suspect]
     Active Substance: RAVULIZUMAB-CWVZ
     Indication: Myasthenia gravis
     Dosage: 2700 MG, SINGLE
     Route: 042
     Dates: start: 20230623, end: 20230623
  2. ULTOMIRIS [Suspect]
     Active Substance: RAVULIZUMAB-CWVZ
     Dosage: 3300 MILLIGRAM, SINGLE
     Route: 042
     Dates: start: 20230707, end: 20230707
  3. ULTOMIRIS [Suspect]
     Active Substance: RAVULIZUMAB-CWVZ
     Dosage: 1800 MILLIGRAM, SINGLE
     Route: 042
     Dates: start: 20230823, end: 20230823
  4. ULTOMIRIS [Suspect]
     Active Substance: RAVULIZUMAB-CWVZ
     Dosage: 3300 MILLIGRAM, SINGLE
     Route: 042
     Dates: start: 20230909, end: 20230909
  5. PREDNISOLONE [Concomitant]
     Active Substance: PREDNISOLONE
     Indication: Myasthenia gravis
     Dosage: 15 MILLIGRAM
     Route: 065
  6. TACROLIMUS [Concomitant]
     Active Substance: TACROLIMUS
     Indication: Myasthenia gravis
     Dosage: 3 MILLIGRAM
     Route: 065

REACTIONS (4)
  - Myasthenia gravis crisis [Recovered/Resolved]
  - Myasthenia gravis [Unknown]
  - Anaphylactoid reaction [Unknown]
  - Pseudomembranous colitis [Recovered/Resolved]

NARRATIVE: CASE EVENT DATE: 20230708
